FAERS Safety Report 6064860-3 (Version None)
Quarter: 2009Q1

REPORT INFORMATION
  Report Type: 
  Country: None (occurrence: None)
  Receive Date: 20090204
  Receipt Date: 20090121
  Transmission Date: 20090719
  Serious: Yes (Death)
  Sender: FDA-Public Use
  Company Number: US-JNJFOC-20090105874

PATIENT
  Sex: Female
  Weight: 45.81 kg

DRUGS (3)
  1. FENTANYL-75 [Suspect]
     Indication: DRUG USE FOR UNKNOWN INDICATION
     Route: 065
  2. DIPHENHYDRAMINE HCL [Concomitant]
  3. DIPHENYLHYDANTOIN [Concomitant]

REACTIONS (3)
  - ARTERIOSCLEROSIS [None]
  - EMPHYSEMA [None]
  - RENAL FAILURE [None]
